FAERS Safety Report 8611399-4 (Version None)
Quarter: 2012Q3

REPORT INFORMATION
  Report Type: 
  Country: None (occurrence: None)
  Receive Date: 20120806
  Receipt Date: 20120527
  Transmission Date: 20120928
  Serious: Yes (Hospitalization, Other)
  Sender: FDA-Public Use
  Company Number: AECAN201200391

PATIENT
  Age: 59 Year
  Sex: Female

DRUGS (3)
  1. GAMUNEX [Suspect]
     Indication: DERMATOMYOSITIS
     Dosage: 40 GM;IV
     Route: 042
     Dates: start: 20120501, end: 20120501
  2. IGIVNEX [Suspect]
     Indication: DERMATOMYOSITIS
     Dosage: 60 GM;IV
     Route: 042
     Dates: start: 20120430, end: 20120501
  3. IGIVNEX [Suspect]

REACTIONS (8)
  - APHASIA [None]
  - MYCOBACTERIAL INFECTION [None]
  - NAUSEA [None]
  - DYSGRAPHIA [None]
  - MENINGOENCEPHALITIS HERPETIC [None]
  - MENINGITIS [None]
  - VOMITING [None]
  - ACALCULIA [None]
